FAERS Safety Report 12687757 (Version 1)
Quarter: 2016Q3

REPORT INFORMATION
  Report Type: Spontaneous
  Country: US (occurrence: US)
  Receive Date: 20160825
  Receipt Date: 20160825
  Transmission Date: 20161109
  Serious: Yes (Other)
  Sender: FDA-Public Use
  Company Number: US-PFIZER INC-2016398690

PATIENT
  Age: 43 Year
  Sex: Female

DRUGS (1)
  1. LYRICA [Suspect]
     Active Substance: PREGABALIN
     Dosage: UNK

REACTIONS (8)
  - Peripheral swelling [Unknown]
  - Affect lability [Unknown]
  - Dizziness [Unknown]
  - Major depression [Unknown]
  - Drug intolerance [Unknown]
  - Hypersensitivity [Unknown]
  - Mood swings [Unknown]
  - Condition aggravated [Unknown]
